FAERS Safety Report 25631693 (Version 2)
Quarter: 2025Q3

REPORT INFORMATION
  Report Type: Spontaneous
  Country: US (occurrence: US)
  Receive Date: 20250801
  Receipt Date: 20250829
  Transmission Date: 20251020
  Serious: Yes (Death, Other)
  Sender: AUROBINDO
  Company Number: US-AUROBINDO-AUR-APL-2025-038442

PATIENT
  Age: 4 Decade
  Sex: Male

DRUGS (4)
  1. CLARITHROMYCIN [Suspect]
     Active Substance: CLARITHROMYCIN
     Indication: Lepromatous leprosy
     Route: 065
  2. MINOCYCLINE [Suspect]
     Active Substance: MINOCYCLINE HYDROCHLORIDE
     Indication: Lepromatous leprosy
     Route: 065
  3. MOXIFLOXACIN [Suspect]
     Active Substance: MOXIFLOXACIN
     Indication: Lepromatous leprosy
     Route: 065
  4. PREDNISONE [Suspect]
     Active Substance: PREDNISONE
     Indication: Addison^s disease
     Route: 065

REACTIONS (6)
  - Cardiac arrest [Fatal]
  - Histoplasmosis disseminated [Unknown]
  - Haemophagocytic lymphohistiocytosis [Unknown]
  - Immune-mediated adverse reaction [Unknown]
  - Multiple organ dysfunction syndrome [Unknown]
  - Product dose omission issue [Unknown]
